FAERS Safety Report 8558338-2 (Version None)
Quarter: 2012Q3

REPORT INFORMATION
  Report Type: 
  Country: None (occurrence: None)
  Receive Date: 20120801
  Receipt Date: 20120725
  Transmission Date: 20120928
  Serious: Yes (Disabling)
  Sender: FDA-Public Use
  Company Number: GB-009507513-1207GBR012584

PATIENT

DRUGS (2)
  1. PROPECIA [Suspect]
     Indication: ANDROGENETIC ALOPECIA
     Dosage: 1 MG, QD
     Route: 048
     Dates: start: 20100701, end: 20120725
  2. ASACOL [Concomitant]
     Indication: COLITIS ULCERATIVE
     Dosage: 500 MG, UNK
     Route: 054

REACTIONS (11)
  - BREAST TENDERNESS [None]
  - ORGASMIC SENSATION DECREASED [None]
  - SPINAL PAIN [None]
  - ERECTILE DYSFUNCTION [None]
  - DISABILITY [None]
  - FALL [None]
  - VITREOUS FLOATERS [None]
  - ASTHENIA [None]
  - HEADACHE [None]
  - SEMEN VOLUME DECREASED [None]
  - MUSCULAR WEAKNESS [None]
